FAERS Safety Report 9813072 (Version 1)
Quarter: 2014Q1

REPORT INFORMATION
  Report Type: Spontaneous
  Country: US (occurrence: None)
  Receive Date: 20140110
  Receipt Date: 20140110
  Transmission Date: 20141002
  Serious: Yes (Other)
  Sender: FDA-Public Use
  Company Number: None

PATIENT
  Age: 39 Year
  Sex: Female
  Weight: 56.25 kg

DRUGS (1)
  1. CIPRO [Suspect]
     Indication: SINUSITIS
     Dosage: 1 DOSE ONCE DAILY TAKEN BY MOUTH
     Route: 048
     Dates: start: 20130307, end: 20140109

REACTIONS (11)
  - Pain [None]
  - Paraesthesia [None]
  - Hypoaesthesia [None]
  - Dizziness [None]
  - Malaise [None]
  - Asthenia [None]
  - Headache [None]
  - Anxiety [None]
  - Panic reaction [None]
  - Nausea [None]
  - Abdominal pain [None]
